FAERS Safety Report 10718172 (Version 2)
Quarter: 2015Q1

REPORT INFORMATION
  Report Type: Spontaneous
  Country: US (occurrence: US)
  Receive Date: 20150118
  Receipt Date: 20150121
  Transmission Date: 20150721
  Serious: No
  Sender: FDA-Public Use
  Company Number: US-ASTRAZENECA-2014SE95993

PATIENT
  Age: 87 Year
  Sex: Male

DRUGS (1)
  1. SYMBICORT [Suspect]
     Active Substance: BUDESONIDE\FORMOTEROL FUMARATE DIHYDRATE
     Dosage: SYMBICORT 160/4.5,2 PUFFS TWICE A DAY
     Route: 055
     Dates: start: 2013

REACTIONS (3)
  - Pulmonary congestion [Not Recovered/Not Resolved]
  - Device misuse [Unknown]
  - Off label use [Not Recovered/Not Resolved]
